FAERS Safety Report 12236579 (Version 1)
Quarter: 2016Q2

REPORT INFORMATION
  Report Type: Spontaneous
  Country: US (occurrence: US)
  Receive Date: 20160405
  Receipt Date: 20160405
  Transmission Date: 20160815
  Serious: Yes (Hospitalization)
  Sender: FDA-Public Use
  Company Number: US-AUROBINDO-AUR-APL-2016-04098

PATIENT
  Age: 37 Year
  Sex: Male

DRUGS (1)
  1. OXYCODONE [Suspect]
     Active Substance: OXYCODONE
     Indication: PRODUCT USED FOR UNKNOWN INDICATION
     Route: 065

REACTIONS (8)
  - Aggression [Unknown]
  - Withdrawal syndrome [Unknown]
  - Abdominal pain [Unknown]
  - Tachypnoea [Unknown]
  - Stress cardiomyopathy [Unknown]
  - Agitation [Unknown]
  - Abdominal discomfort [Unknown]
  - Chest discomfort [Unknown]
